FAERS Safety Report 4531678-X (Version None)
Quarter: 2004Q4

REPORT INFORMATION
  Report Type: 
  Country: None (occurrence: None)
  Receive Date: 20041216
  Receipt Date: 20041216
  Transmission Date: 20050328
  Serious: Yes (Death)
  Sender: FDA-Public Use
  Company Number: None

PATIENT
  Age: 84 Year
  Sex: Male
  Weight: 81.6 kg

DRUGS (1)
  1. COUMADIN [Suspect]
     Indication: ATRIAL FLUTTER
     Dosage: 2.5 MG PO DAILY
     Route: 048

REACTIONS (2)
  - CEREBRAL HAEMORRHAGE [None]
  - COMA [None]
